FAERS Safety Report 9308510 (Version 4)
Quarter: 2013Q3

REPORT INFORMATION
  Report Type: Report from Study
  Country: PL (occurrence: PL)
  Receive Date: 20130524
  Receipt Date: 20130801
  Transmission Date: 20140515
  Serious: Yes (Hospitalization)
  Sender: FDA-Public Use
  Company Number: PL-ROCHE-1227689

PATIENT
  Age: 36 Year
  Sex: Female
  Weight: 65 kg

DRUGS (2)
  1. PEGASYS [Suspect]
     Indication: HEPATITIS C
     Route: 058
     Dates: start: 20091106, end: 20101008
  2. COPEGUS [Suspect]
     Indication: HEPATITIS C
     Route: 048
     Dates: start: 20091106, end: 20101008

REACTIONS (16)
  - Pulmonary sarcoidosis [Recovered/Resolved]
  - Productive cough [Unknown]
  - Dyspnoea exertional [Unknown]
  - Urinary tract infection [Unknown]
  - Asthma [Unknown]
  - Iron deficiency anaemia [Unknown]
  - Asthenia [Unknown]
  - Sleep disorder [Unknown]
  - Decreased appetite [Unknown]
  - Nausea [Unknown]
  - Alopecia [Unknown]
  - Mucosal dryness [Unknown]
  - Pruritus [Unknown]
  - Vomiting [Unknown]
  - Pyrexia [Unknown]
  - Chills [Unknown]
